FAERS Safety Report 6872116-1 (Version None)
Quarter: 2010Q3

REPORT INFORMATION
  Report Type: 
  Country: None (occurrence: None)
  Receive Date: 20100723
  Receipt Date: 20100716
  Transmission Date: 20110219
  Serious: Yes (Other)
  Sender: FDA-Public Use
  Company Number: US-CEPHALON-2010003792

PATIENT
  Sex: Female
  Weight: 57 kg

DRUGS (3)
  1. PROVIGIL [Suspect]
     Indication: FATIGUE
     Route: 048
     Dates: start: 20070101
  2. AVONEX [Concomitant]
     Indication: MULTIPLE SCLEROSIS
     Dates: start: 19980101
  3. IBUPROFEN [Concomitant]

REACTIONS (3)
  - ABDOMINAL PAIN [None]
  - ABORTION SPONTANEOUS [None]
  - DRUG EXPOSURE DURING PREGNANCY [None]
